FAERS Safety Report 5128964-1 (Version None)
Quarter: 2006Q4

REPORT INFORMATION
  Report Type: 
  Country: None (occurrence: None)
  Receive Date: 20061016
  Receipt Date: 20061016
  Transmission Date: 20070319
  Serious: No
  Sender: FDA-Public Use
  Company Number: None

PATIENT
  Sex: Female
  Weight: 58.6 kg

DRUGS (1)
  1. FLUOROURACIL [Suspect]
     Dosage: 2310 MG

REACTIONS (5)
  - DEHYDRATION [None]
  - FATIGUE [None]
  - HYPOKALAEMIA [None]
  - MUCOSAL INFLAMMATION [None]
  - PERFORMANCE STATUS DECREASED [None]
